FAERS Safety Report 22629447 (Version 1)
Quarter: 2023Q2

REPORT INFORMATION
  Report Type: Report from Study
  Country: US (occurrence: US)
  Receive Date: 20230622
  Receipt Date: 20230622
  Transmission Date: 20230722
  Serious: Yes (Other)
  Sender: FDA-Public Use
  Company Number: US-HORIZON THERAPEUTICS-HZN-2023-004692

PATIENT

DRUGS (1)
  1. KRYSTEXXA [Suspect]
     Active Substance: PEGLOTICASE
     Indication: Product used for unknown indication
     Dosage: FIRST INFUSION
     Route: 042
     Dates: start: 20230615

REACTIONS (3)
  - Loss of consciousness [Unknown]
  - Blood pressure decreased [Unknown]
  - Urticaria [Unknown]

NARRATIVE: CASE EVENT DATE: 20230615
